FAERS Safety Report 20176296 (Version 2)
Quarter: 2022Q1

REPORT INFORMATION
  Report Type: Spontaneous
  Country: CZ (occurrence: CZ)
  Receive Date: 20211213
  Receipt Date: 20220204
  Transmission Date: 20220423
  Serious: Yes (Life-Threatening, Other)
  Sender: FDA-Public Use
  Company Number: CZ-PFIZER INC-202101720192

PATIENT
  Age: 57 Year
  Sex: Male

DRUGS (5)
  1. MYLOTARG [Suspect]
     Active Substance: GEMTUZUMAB OZOGAMICIN
     Indication: Acute myeloid leukaemia
     Dosage: 1ST INDUCTION 200/60: MYLOTARG 5 MG - 3 MG/M2, CYCLIC (DAY 1, 4, 7)
     Dates: start: 20200812
  2. CYTARABINE [Suspect]
     Active Substance: CYTARABINE
     Dosage: 1ST INDUCTION 200/60: CYTOSAR 370 MG  CONTINUOUS INTRAVENOUS INFUSION 24 HOURS DAY 1- 7
     Route: 042
     Dates: start: 20200812
  3. DAUNORUBICIN HYDROCHLORIDE [Suspect]
     Active Substance: DAUNORUBICIN HYDROCHLORIDE
     Indication: Acute myeloid leukaemia
     Dosage: 1ST INDUCTION (200/60), DAUNOBLASTIN 110 MG D1-3
     Dates: start: 20200812
  4. RYDAPT [Suspect]
     Active Substance: MIDOSTAURIN
     Indication: Acute myeloid leukaemia
     Dosage: 1ST INDUCTION (200/60), RYDAPT 50 MG TBL 2-0-2 D8-21
     Dates: start: 20200819
  5. ONDANSETRON [Concomitant]
     Active Substance: ONDANSETRON
     Indication: Prophylaxis of nausea and vomiting
     Dosage: UNK

REACTIONS (6)
  - Infection in an immunocompromised host [Unknown]
  - Neutropenia [Unknown]
  - Bone marrow failure [Unknown]
  - Cachexia [Unknown]
  - Febrile neutropenia [Unknown]
  - Pneumonia fungal [Unknown]

NARRATIVE: CASE EVENT DATE: 20200904
